FAERS Safety Report 6087247-6 (Version None)
Quarter: 2009Q1

REPORT INFORMATION
  Report Type: 
  Country: None (occurrence: None)
  Receive Date: 20090219
  Receipt Date: 20090219
  Transmission Date: 20090719
  Serious: No
  Sender: FDA-Public Use
  Company Number: None

PATIENT
  Age: 56 Year
  Sex: Male
  Weight: 75.7507 kg

DRUGS (5)
  1. DIPHENHYDRAMINE HCL [Suspect]
     Dosage: 50MG Q 6 HRS PO
     Route: 048
  2. FLUPHENAZINE [Concomitant]
  3. CLONAZEPAM [Concomitant]
  4. DOCUSATE [Concomitant]
  5. LORAZEPAM [Concomitant]

REACTIONS (5)
  - ABNORMAL BEHAVIOUR [None]
  - AGGRESSION [None]
  - AGITATION [None]
  - PHYSICAL ABUSE [None]
  - THINKING ABNORMAL [None]
